FAERS Safety Report 6341393-8 (Version None)
Quarter: 2009Q3

REPORT INFORMATION
  Report Type: 
  Country: None (occurrence: None)
  Receive Date: 20090902
  Receipt Date: 20090902
  Transmission Date: 20100115
  Serious: No
  Sender: FDA-Public Use
  Company Number: None

PATIENT
  Sex: Male
  Weight: 20 kg

DRUGS (1)
  1. GAMMAGARD [Suspect]
     Indication: KAWASAKI'S DISEASE
     Dosage: 40 GM X1 IV DRIP
     Route: 041
     Dates: start: 20090608, end: 20090608

REACTIONS (9)
  - ARTHRITIS [None]
  - C-REACTIVE PROTEIN DECREASED [None]
  - CONDITION AGGRAVATED [None]
  - DRUG RESISTANCE [None]
  - JOINT EFFUSION [None]
  - PYREXIA [None]
  - RASH ERYTHEMATOUS [None]
  - RASH MACULAR [None]
  - RASH PAPULAR [None]
